FAERS Safety Report 14536466 (Version 1)
Quarter: 2018Q1

REPORT INFORMATION
  Report Type: Spontaneous
  Country: CN (occurrence: CN)
  Receive Date: 20180215
  Receipt Date: 20180215
  Transmission Date: 20180509
  Serious: Yes (Other)
  Sender: FDA-Public Use
  Company Number: CN-MYLANLABS-2018M1010180

PATIENT
  Sex: Female

DRUGS (2)
  1. CISPLATIN. [Suspect]
     Active Substance: CISPLATIN
     Indication: NEUROENDOCRINE TUMOUR OF THE LUNG
     Dosage: 75 MG/ME2; ALL THE SCHEDULED 6 CYCLES COMPLETED
     Route: 065
     Dates: start: 20150608, end: 20151209
  2. ETOPOSIDE. [Suspect]
     Active Substance: ETOPOSIDE
     Indication: NEUROENDOCRINE TUMOUR OF THE LUNG
     Dosage: 100 MG/ME2; ALL THE SCHEDULED 6 CYCLES COMPLETED
     Route: 065
     Dates: start: 20150608, end: 20151209

REACTIONS (2)
  - Gastrointestinal disorder [Unknown]
  - Bone marrow failure [Unknown]
